FAERS Safety Report 5235812-8 (Version None)
Quarter: 2007Q1

REPORT INFORMATION
  Report Type: 
  Country: None (occurrence: None)
  Receive Date: 20070212
  Receipt Date: 20070129
  Transmission Date: 20070707
  Serious: Yes (Other)
  Sender: FDA-Public Use
  Company Number: FR-AMGEN-UK209532

PATIENT

DRUGS (4)
  1. CINACALCET [Suspect]
  2. MYCOPHENOLATE MOFETIL [Concomitant]
     Route: 065
  3. CORTICOSTEROIDS [Concomitant]
     Route: 065
  4. IMMUNOSUPPRESSANTS [Concomitant]
     Route: 065

REACTIONS (7)
  - DIARRHOEA [None]
  - DRUG INTOLERANCE [None]
  - GASTROINTESTINAL DISORDER [None]
  - HYPOCALCAEMIA [None]
  - PRURITUS [None]
  - RENAL FAILURE ACUTE [None]
  - VOMITING [None]
